FAERS Safety Report 6903418-8 (Version None)
Quarter: 2010Q3

REPORT INFORMATION
  Report Type: 
  Country: None (occurrence: None)
  Receive Date: 20100803
  Receipt Date: 20080930
  Transmission Date: 20110219
  Serious: No
  Sender: FDA-Public Use
  Company Number: US-PFIZER INC-2008082978

PATIENT
  Sex: Female

DRUGS (4)
  1. LYRICA [Suspect]
     Indication: OCCIPITAL NEURALGIA
     Dates: start: 20070201
  2. CYMBALTA [Concomitant]
  3. ALL OTHER THERAPEUTIC PRODUCTS [Concomitant]
  4. DRUG, UNSPECIFIED [Concomitant]

REACTIONS (3)
  - JOINT SWELLING [None]
  - OEDEMA PERIPHERAL [None]
  - WEIGHT INCREASED [None]
